FAERS Safety Report 7311715-X (Version None)
Quarter: 2011Q1

REPORT INFORMATION
  Report Type: 
  Country: None (occurrence: None)
  Receive Date: 20110224
  Receipt Date: 20110120
  Transmission Date: 20110831
  Serious: Yes (Other)
  Sender: FDA-Public Use
  Company Number: PHHY2011DE05270

PATIENT
  Age: 28 Year
  Sex: Male

DRUGS (1)
  1. LEPONEX [Suspect]
     Dosage: 250 MG, QD

REACTIONS (2)
  - GAZE PALSY [None]
  - GRANULOCYTOPENIA [None]
